FAERS Safety Report 10674431 (Version 1)
Quarter: 2014Q4

REPORT INFORMATION
  Report Type: Spontaneous
  Country: US (occurrence: None)
  Receive Date: 20141210
  Receipt Date: 20141210
  Transmission Date: 20150529
  Serious: Yes (Other)
  Sender: FDA-Public Use
  Company Number: ALL1-2013-09002

PATIENT

DRUGS (1)
  1. MAS [Suspect]
     Active Substance: AMPHETAMINE
     Indication: PRODUCT USED FOR UNKNOWN INDICATION
     Route: 048
     Dates: start: 2012, end: 201312

REACTIONS (1)
  - Delusional perception [None]

NARRATIVE: CASE EVENT DATE: 201312
